FAERS Safety Report 5776177-2 (Version None)
Quarter: 2008Q2

REPORT INFORMATION
  Report Type: 
  Country: None (occurrence: None)
  Receive Date: 20080616
  Receipt Date: 20080605
  Transmission Date: 20081010
  Serious: Yes (Death)
  Sender: FDA-Public Use
  Company Number: POMP-1000173

PATIENT
  Age: 7 Month
  Sex: Female

DRUGS (1)
  1. MYOZYME [Suspect]
     Indication: GLYCOGEN STORAGE DISEASE TYPE II
     Dosage: 20 MG/KG, ONCE, INTRAVENOUS
     Route: 042
     Dates: start: 20080505, end: 20080505

REACTIONS (3)
  - CARDIOMYOPATHY [None]
  - CARNITINE DEFICIENCY [None]
  - RESPIRATORY FAILURE [None]
